FAERS Safety Report 6778159 (Version 5)
Quarter: 2013Q2

REPORT INFORMATION
  Report Type: Spontaneous
  Country: US (occurrence: US)
  Receive Date: 20081003
  Receipt Date: 20130402
  Transmission Date: 20140414
  Serious: Yes (Other)
  Sender: FDA-Public Use
  Company Number: US-BAYER-200834376NA

PATIENT
  Sex: Male
  Weight: 81.63 kg

DRUGS (28)
  1. MAGNEVIST [Suspect]
     Indication: NUCLEAR MAGNETIC RESONANCE IMAGING
     Dosage: 15 ML, ONCE
     Route: 042
     Dates: start: 20060111, end: 20060111
  2. MAGNEVIST [Suspect]
     Indication: NUCLEAR MAGNETIC RESONANCE IMAGING
     Dosage: 18 ML, ONCE
     Route: 042
     Dates: start: 20060119, end: 20060119
  3. MAGNEVIST [Suspect]
     Indication: NUCLEAR MAGNETIC RESONANCE IMAGING
     Dosage: UNK
     Dates: start: 20060217, end: 20060217
  4. NEBIVOLOL HYDROCHLORIDE [Concomitant]
  5. FUROSEMIDE [FUROSEMIDE] [Concomitant]
  6. METOPROLOL [Concomitant]
  7. WARFARIN [Concomitant]
  8. AMLODIPINE [Concomitant]
  9. GLYBURIDE [Concomitant]
  10. NOVOLOG [Concomitant]
  11. IRON [CITRIC ACID,FERROUS SULFATE] [Concomitant]
  12. ZESTORETIC [Concomitant]
  13. AVAPRO [Concomitant]
  14. LISINOPRIL [Concomitant]
  15. HYDROCHLOROTHIAZIDE [Concomitant]
  16. AVANDAMET [Concomitant]
  17. JANUVIA [Concomitant]
  18. GLUCOPHAGE [Concomitant]
  19. METFORMIN [Concomitant]
  20. CELEBREX [Concomitant]
  21. PREDNISONE [Concomitant]
  22. LEVEMIR [Concomitant]
  23. AVANDIA [Concomitant]
  24. GLUCOTROL [Concomitant]
  25. PRAVASTATIN [Concomitant]
  26. NORVASC [Concomitant]
  27. LISINOPRIL HCT [Concomitant]
  28. ACTOS [Concomitant]

REACTIONS (15)
  - Nephrogenic systemic fibrosis [Not Recovered/Not Resolved]
  - Fibrosis [Not Recovered/Not Resolved]
  - Skin fibrosis [Not Recovered/Not Resolved]
  - Injury [Not Recovered/Not Resolved]
  - Pain [Not Recovered/Not Resolved]
  - Anxiety [Not Recovered/Not Resolved]
  - Emotional distress [Not Recovered/Not Resolved]
  - Mobility decreased [Not Recovered/Not Resolved]
  - General physical health deterioration [Not Recovered/Not Resolved]
  - Skin discolouration [Not Recovered/Not Resolved]
  - Swelling [Not Recovered/Not Resolved]
  - Gait disturbance [Not Recovered/Not Resolved]
  - Musculoskeletal pain [Not Recovered/Not Resolved]
  - Skin exfoliation [Not Recovered/Not Resolved]
  - Arthralgia [Not Recovered/Not Resolved]
